FAERS Safety Report 10055778 (Version 2)
Quarter: 2014Q2

REPORT INFORMATION
  Report Type: Report from Study
  Country: FR (occurrence: FR)
  Receive Date: 20140403
  Receipt Date: 20140403
  Transmission Date: 20141212
  Serious: Yes (Other)
  Sender: FDA-Public Use
  Company Number: FR-ACCORD-022736

PATIENT
  Age: 70 Year
  Sex: Female

DRUGS (3)
  1. MYCOPHENOLIC ACID [Suspect]
     Indication: MYELODYSPLASTIC SYNDROME
  2. METHOTREXATE [Suspect]
     Indication: MYELODYSPLASTIC SYNDROME
  3. CICLOSPORIN [Suspect]
     Indication: MYELODYSPLASTIC SYNDROME

REACTIONS (2)
  - CD8 lymphocytes increased [Unknown]
  - Treatment failure [Unknown]
